FAERS Safety Report 14832920 (Version 2)
Quarter: 2018Q2

REPORT INFORMATION
  Report Type: Spontaneous
  Country: US (occurrence: US)
  Receive Date: 20180501
  Receipt Date: 20180508
  Transmission Date: 20180711
  Serious: Yes (Hospitalization)
  Sender: FDA-Public Use
  Company Number: PHEH2018US015739

PATIENT
  Age: 60 Year
  Sex: Female

DRUGS (2)
  1. MEKINIST [Suspect]
     Active Substance: TRAMETINIB DIMETHYL SULFOXIDE
     Indication: BONE CANCER
     Dosage: 2 MG, QD
     Route: 048
     Dates: start: 20180323, end: 20180420
  2. TAFINLAR [Suspect]
     Active Substance: DABRAFENIB MESYLATE
     Indication: BONE CANCER
     Dosage: 150 MG, Q12H
     Route: 048
     Dates: start: 20171130, end: 20180420

REACTIONS (2)
  - Fluid retention [Unknown]
  - Hepatitis C [Unknown]

NARRATIVE: CASE EVENT DATE: 20180406
